FAERS Safety Report 4513348-7 (Version None)
Quarter: 2004Q4

REPORT INFORMATION
  Report Type: 
  Country: None (occurrence: None)
  Receive Date: 20041130
  Receipt Date: 20040618
  Transmission Date: 20050328
  Serious: No
  Sender: FDA-Public Use
  Company Number: US-BRISTOL-MYERS SQUIBB COMPANY-12677258

PATIENT
  Age: 49 Year
  Sex: Female

DRUGS (8)
  1. ERBITUX [Suspect]
     Indication: ADENOCARCINOMA
     Route: 042
     Dates: start: 20040414, end: 20040414
  2. APAP TAB [Concomitant]
     Indication: PREMEDICATION
     Dates: start: 20040414, end: 20040414
  3. BENADRYL [Concomitant]
     Indication: PREMEDICATION
     Dates: start: 20040414, end: 20040414
  4. DEXAMETHASONE [Concomitant]
     Indication: PREMEDICATION
     Dates: start: 20040414, end: 20040414
  5. ZOFRAN [Concomitant]
     Indication: PREMEDICATION
     Dates: start: 20040414, end: 20040414
  6. FLUOROURACIL [Concomitant]
     Dates: start: 20040414, end: 20040414
  7. IRINOTECAN [Concomitant]
     Dates: start: 20040414, end: 20040414
  8. LEUCOVORIN [Concomitant]
     Dates: start: 20040414, end: 20040414

REACTIONS (2)
  - DERMATITIS ACNEIFORM [None]
  - RASH GENERALISED [None]
